FAERS Safety Report 9334171 (Version 1)
Quarter: 2013Q2

REPORT INFORMATION
  Report Type: Spontaneous
  Country: US (occurrence: US)
  Receive Date: 20130606
  Receipt Date: 20130606
  Transmission Date: 20140414
  Serious: No
  Sender: FDA-Public Use
  Company Number: US-TARO-2012P1066704

PATIENT
  Sex: Male
  Weight: 104.33 kg

DRUGS (2)
  1. BETAMETHASONE DIPROPIONATE [Suspect]
     Indication: PSORIASIS
     Route: 061
  2. ATENOLOL [Suspect]
     Dates: start: 2002

REACTIONS (2)
  - Psoriasis [Not Recovered/Not Resolved]
  - Hypertension [Not Recovered/Not Resolved]
